FAERS Safety Report 12253276 (Version 2)
Quarter: 2016Q2

REPORT INFORMATION
  Report Type: Spontaneous
  Country: JP (occurrence: JP)
  Receive Date: 20160411
  Receipt Date: 20160425
  Transmission Date: 20160815
  Serious: Yes (Other)
  Sender: FDA-Public Use
  Company Number: JP-GLAXOSMITHKLINE-JP2016JPN045061

PATIENT
  Sex: Male

DRUGS (8)
  1. ACYCLOVIR. [Suspect]
     Active Substance: ACYCLOVIR
     Indication: HERPES SIMPLEX ENCEPHALITIS
     Dosage: 30 MG/KG, 1D
     Route: 041
  2. ACYCLOVIR. [Suspect]
     Active Substance: ACYCLOVIR
     Indication: MENINGITIS VIRAL
     Dosage: UNK
     Route: 041
  3. UNKNOWN DRUG [Concomitant]
     Active Substance: UNSPECIFIED INGREDIENT
     Dosage: UNK
  4. ARASENA-A [Concomitant]
     Active Substance: VIDARABINE
     Dosage: UNK
  5. FOSCAVIR [Concomitant]
     Active Substance: FOSCARNET SODIUM
     Dosage: 40 MG/KG, 1D
  6. ACYCLOVIR. [Suspect]
     Active Substance: ACYCLOVIR
     Dosage: 45 MG/KG, 1D
     Route: 041
  7. ARASENA-A [Concomitant]
     Active Substance: VIDARABINE
     Dosage: 15 MG/KG, 1D
  8. PREDNISOLONE. [Concomitant]
     Active Substance: PREDNISOLONE
     Dosage: 60 MG, 1D

REACTIONS (11)
  - Electroencephalogram abnormal [Unknown]
  - Renal impairment [Unknown]
  - VIth nerve paralysis [Unknown]
  - Mental impairment [Not Recovered/Not Resolved]
  - Cerebral haemorrhage [Unknown]
  - Muscle atrophy [Not Recovered/Not Resolved]
  - Brain oedema [Unknown]
  - CSF cell count increased [Recovering/Resolving]
  - Immunisation reaction [Unknown]
  - Hemiplegia [Unknown]
  - Altered state of consciousness [Unknown]
